FAERS Safety Report 9153463 (Version 1)
Quarter: 2013Q1

REPORT INFORMATION
  Report Type: Spontaneous
  Country: US (occurrence: None)
  Receive Date: 20130306
  Receipt Date: 20130306
  Transmission Date: 20140127
  Serious: No
  Sender: FDA-Public Use
  Company Number: None

PATIENT
  Age: 61 Year
  Sex: Male
  Weight: 83.46 kg

DRUGS (1)
  1. SIMVASTATIN [Suspect]
     Indication: BLOOD CHOLESTEROL INCREASED
     Route: 048
     Dates: start: 20130128, end: 20130203

REACTIONS (9)
  - Musculoskeletal pain [None]
  - Headache [None]
  - Ear pain [None]
  - Insomnia [None]
  - Pollakiuria [None]
  - Candida infection [None]
  - Hot flush [None]
  - Pain [None]
  - Asthenia [None]
